FAERS Safety Report 6444366-X (Version None)
Quarter: 2009Q4

REPORT INFORMATION
  Report Type: 
  Country: None (occurrence: None)
  Receive Date: 20091110
  Receipt Date: 20090918
  Transmission Date: 20100525
  Serious: No
  Sender: FDA-Public Use
  Company Number: 1000008974

PATIENT
  Age: 43 Year
  Sex: Male

DRUGS (5)
  1. SAVELLA [Suspect]
     Indication: PAIN
     Dosage: 12.5 MG (12.5 MG, 1 IN 1 D), ORAL 25 MG (12.5 MG, 2 IN 1 D), ORAL 50 MG (25 MG, 2 IN 1 D), ORAL
     Route: 048
     Dates: start: 20090718, end: 20090718
  2. SAVELLA [Suspect]
     Indication: PAIN
     Dosage: 12.5 MG (12.5 MG, 1 IN 1 D), ORAL 25 MG (12.5 MG, 2 IN 1 D), ORAL 50 MG (25 MG, 2 IN 1 D), ORAL
     Route: 048
     Dates: start: 20090725, end: 20090730
  3. SAVELLA [Suspect]
     Dosage: 100 MG (50 MG, 2 IN 1 D), ORAL
     Route: 048
     Dates: start: 20090725, end: 20090730
  4. TRAMADOL HCL [Suspect]
     Indication: PAIN
     Dosage: 150 MG (50 MG, 3 IN 1 D), ORAL
     Route: 048
     Dates: start: 20090718, end: 20090730
  5. AMBIEN [Concomitant]

REACTIONS (3)
  - DECREASED APPETITE [None]
  - MUSCLE SPASMS [None]
  - TREMOR [None]
